FAERS Safety Report 9131307 (Version 1)
Quarter: 2013Q1

REPORT INFORMATION
  Report Type: Spontaneous
  Country: US (occurrence: US)
  Receive Date: 20130301
  Receipt Date: 20130301
  Transmission Date: 20140127
  Serious: Yes (Other)
  Sender: FDA-Public Use
  Company Number: US-BAYER-2013-026245

PATIENT
  Age: 58 Year
  Sex: Male
  Weight: 95.24 kg

DRUGS (1)
  1. ALEVE CAPLET/TABLET,MIDOL EXTENDED RELIEF CAPLET [Suspect]
     Indication: HEADACHE
     Dosage: 2 DF, ONCE
     Route: 048
     Dates: start: 20130215, end: 20130215

REACTIONS (4)
  - Lip swelling [Recovered/Resolved]
  - Swollen tongue [None]
  - Abdominal pain upper [Recovered/Resolved]
  - Rash erythematous [Recovered/Resolved]
